FAERS Safety Report 5498119-X (Version None)
Quarter: 2007Q4

REPORT INFORMATION
  Report Type: 
  Country: None (occurrence: None)
  Receive Date: 20071025
  Receipt Date: 20071018
  Transmission Date: 20080405
  Serious: No
  Sender: FDA-Public Use
  Company Number: US-BOEHRINGER INGELHEIM PHARMACEUTICALS, INC.-2007-BP-22031BP

PATIENT
  Age: 83 Year
  Sex: Male

DRUGS (11)
  1. ZANTAC 150 [Suspect]
     Indication: DYSPEPSIA
     Route: 048
     Dates: start: 20071001
  2. ZANTAC 150 [Suspect]
  3. AMARYL [Concomitant]
     Indication: DIABETES MELLITUS
  4. LOPID [Concomitant]
  5. ASPIRIN [Concomitant]
  6. VALIUM [Concomitant]
  7. LOVASTATIN [Concomitant]
  8. ACETAMINOPHEN [Concomitant]
  9. ALEVE [Concomitant]
  10. CENTRUM [Concomitant]
  11. VITAMIN D [Concomitant]

REACTIONS (1)
  - BLOOD GLUCOSE INCREASED [None]
